FAERS Safety Report 9791809 (Version 8)
Quarter: 2014Q3

REPORT INFORMATION
  Report Type: Spontaneous
  Country: US (occurrence: US)
  Receive Date: 20140102
  Receipt Date: 20140808
  Transmission Date: 20150326
  Serious: Yes (Other)
  Sender: FDA-Public Use
  Company Number: US-JNJFOC-20131215431

PATIENT
  Age: 63 Year
  Sex: Female
  Weight: 66.67 kg

DRUGS (30)
  1. SUTENT [Suspect]
     Active Substance: SUNITINIB MALATE
     Indication: PRODUCT USED FOR UNKNOWN INDICATION
     Dosage: FOLLOWED BY ONE WEEK OFF
     Route: 065
     Dates: start: 20130612
  2. ZOFRAN [Concomitant]
     Active Substance: ONDANSETRON HYDROCHLORIDE
     Route: 065
  3. COMPAZINE [Concomitant]
     Active Substance: PROCHLORPERAZINE MALEATE
     Route: 065
  4. PRIMIDONE. [Concomitant]
     Active Substance: PRIMIDONE
     Route: 065
  5. OXYGEN. [Concomitant]
     Active Substance: OXYGEN
     Dosage: CONTINUOUS AT NIGHT
     Route: 065
  6. SPIRIVA [Concomitant]
     Active Substance: TIOTROPIUM BROMIDE MONOHYDRATE
     Route: 065
  7. LIPITOR [Concomitant]
     Active Substance: ATORVASTATIN CALCIUM
     Route: 065
  8. VENTOLINE INHALER [Concomitant]
     Route: 065
  9. NYSTATIN SWISH AND SWALLOW [Concomitant]
     Route: 065
  10. XARELTO [Suspect]
     Active Substance: RIVAROXABAN
     Indication: THROMBOSIS
     Route: 048
  11. NEBULIZER ALBUTEROL [Concomitant]
     Route: 065
  12. TEMAZEPAM. [Concomitant]
     Active Substance: TEMAZEPAM
     Route: 065
  13. XARELTO [Suspect]
     Active Substance: RIVAROXABAN
     Indication: COAGULOPATHY
     Route: 048
  14. SUTENT [Suspect]
     Active Substance: SUNITINIB MALATE
     Indication: PRODUCT USED FOR UNKNOWN INDICATION
     Route: 065
     Dates: start: 20131204
  15. PLAVIX [Interacting]
     Active Substance: CLOPIDOGREL BISULFATE
     Indication: THROMBOSIS
     Route: 065
  16. PROTONIX [Concomitant]
     Active Substance: PANTOPRAZOLE SODIUM
     Route: 065
  17. METOPROLOL [Concomitant]
     Active Substance: METOPROLOL
     Route: 065
  18. RECLAST [Concomitant]
     Active Substance: ZOLEDRONIC ACID
     Route: 065
  19. DOXEPIN [Concomitant]
     Active Substance: DOXEPIN
     Route: 065
  20. ROXICODONE [Concomitant]
     Active Substance: OXYCODONE HYDROCHLORIDE
     Route: 065
  21. DULCOLAX [Concomitant]
     Active Substance: BISACODYL OR DOCUSATE SODIUM
     Route: 065
  22. PLAVIX [Interacting]
     Active Substance: CLOPIDOGREL BISULFATE
     Indication: COAGULOPATHY
     Route: 065
  23. REQUIP [Concomitant]
     Active Substance: ROPINIROLE HYDROCHLORIDE
     Route: 065
  24. VITAMIN D3 [Concomitant]
     Active Substance: CHOLECALCIFEROL
     Route: 065
  25. LASIX [Concomitant]
     Active Substance: FUROSEMIDE
     Route: 065
  26. LASIX [Concomitant]
     Active Substance: FUROSEMIDE
     Route: 065
  27. ASPIRIN. [Interacting]
     Active Substance: ASPIRIN
     Indication: COAGULOPATHY
     Route: 065
  28. TAGAMET [Concomitant]
     Active Substance: CIMETIDINE
     Route: 065
  29. OXYCONTIN [Concomitant]
     Active Substance: OXYCODONE HYDROCHLORIDE
     Route: 065
  30. SYNTHROID [Concomitant]
     Active Substance: LEVOTHYROXINE SODIUM
     Route: 065

REACTIONS (30)
  - Wound infection fungal [Unknown]
  - Limb injury [Unknown]
  - Peripheral swelling [Unknown]
  - Oedema [Recovered/Resolved]
  - Skin exfoliation [Recovered/Resolved]
  - Post-traumatic pain [Unknown]
  - Fatigue [Not Recovered/Not Resolved]
  - Fluid retention [Unknown]
  - Weight fluctuation [Unknown]
  - Blister [Recovered/Resolved]
  - Onychalgia [Unknown]
  - Vomiting [Unknown]
  - Nausea [Unknown]
  - Drug interaction [Unknown]
  - Haemorrhage [Unknown]
  - Impaired healing [Unknown]
  - Thyroid gland scan abnormal [Unknown]
  - Gait disturbance [Unknown]
  - Muscle spasms [Unknown]
  - Weight decreased [Unknown]
  - Diarrhoea [Not Recovered/Not Resolved]
  - Flatulence [Unknown]
  - Off label use [Unknown]
  - Haemorrhagic diathesis [Unknown]
  - Skin haemorrhage [Unknown]
  - Swelling [Recovered/Resolved]
  - Alopecia [Unknown]
  - Limb injury [Unknown]
  - Arrhythmia [Unknown]
  - Weight increased [Unknown]

NARRATIVE: CASE EVENT DATE: 201401
